FAERS Safety Report 4344591-8 (Version None)
Quarter: 2004Q1

REPORT INFORMATION
  Report Type: 
  Country: None (occurrence: None)
  Receive Date: 20040319
  Receipt Date: 20040209
  Transmission Date: 20041129
  Serious: No
  Sender: FDA-Public Use
  Company Number: US-JNJFOC-20040202462

PATIENT
  Age: 17 Year
  Sex: Female
  Weight: 54.8852 kg

DRUGS (1)
  1. ORTHO EVRA [Suspect]
     Indication: CONTRACEPTION
     Dosage: 1 DOSE(S),3 IN 4 WEEK TRANSDERMAL
     Route: 062
     Dates: start: 20031214, end: 20040127

REACTIONS (5)
  - ABDOMINAL DISTENSION [None]
  - BREAST TENDERNESS [None]
  - HYPERTROPHY BREAST [None]
  - NAUSEA [None]
  - WEIGHT INCREASED [None]
